FAERS Safety Report 9239193 (Version 1)
Quarter: 2013Q2

REPORT INFORMATION
  Report Type: Spontaneous
  Country: US (occurrence: US)
  Receive Date: 20130418
  Receipt Date: 20130418
  Transmission Date: 20140414
  Serious: Yes (Other)
  Sender: FDA-Public Use
  Company Number: US-PFIZER INC-2013117879

PATIENT
  Sex: Female

DRUGS (1)
  1. TOVIAZ [Suspect]
     Indication: URINARY INCONTINENCE
     Dosage: UNK

REACTIONS (4)
  - Swelling face [Unknown]
  - Tongue disorder [Unknown]
  - Lip disorder [Unknown]
  - Pharyngeal disorder [Unknown]
